FAERS Safety Report 23127634 (Version 2)
Quarter: 2024Q2

REPORT INFORMATION
  Report Type: Spontaneous
  Country: GR (occurrence: GR)
  Receive Date: 20231031
  Receipt Date: 20240524
  Transmission Date: 20240716
  Serious: Yes (Other)
  Sender: FDA-Public Use
  Company Number: GR-NOVOPROD-1130441

PATIENT
  Age: 66 Year
  Sex: Male
  Weight: 98 kg

DRUGS (2)
  1. OZEMPIC [Suspect]
     Active Substance: SEMAGLUTIDE
     Dosage: 1 MG, QW (RESTART)
     Route: 058
  2. OZEMPIC [Suspect]
     Active Substance: SEMAGLUTIDE
     Indication: Type 2 diabetes mellitus
     Dosage: 1 MG, QW
     Route: 058
     Dates: end: 202309

REACTIONS (1)
  - Carbohydrate antigen 72-4 [Not Recovered/Not Resolved]

NARRATIVE: CASE EVENT DATE: 20230801
